FAERS Safety Report 14477259 (Version 1)
Quarter: 2018Q1

REPORT INFORMATION
  Report Type: Report from Study
  Country: ES (occurrence: ES)
  Receive Date: 20180201
  Receipt Date: 20180201
  Transmission Date: 20180509
  Serious: No
  Sender: FDA-Public Use
  Company Number: ES-EXELIXIS-CABO-17010008

PATIENT
  Sex: Male
  Weight: 104 kg

DRUGS (2)
  1. CABOMETYX [Suspect]
     Active Substance: CABOZANTINIB S-MALATE
     Indication: RENAL CANCER METASTATIC
     Dosage: 60 MG, QD
     Route: 048
     Dates: start: 20170621, end: 20170802
  2. CABOMETYX [Suspect]
     Active Substance: CABOZANTINIB S-MALATE
     Dosage: 40 MG, QD
     Route: 048
     Dates: start: 20170811

REACTIONS (7)
  - Hypocalcaemia [Unknown]
  - Dysphonia [Unknown]
  - Hypertension [Unknown]
  - Enteritis [Unknown]
  - Hypothyroidism [Unknown]
  - Diarrhoea [Unknown]
  - Hypomagnesaemia [Unknown]
